FAERS Safety Report 5921913-5 (Version None)
Quarter: 2008Q4

REPORT INFORMATION
  Report Type: 
  Country: None (occurrence: None)
  Receive Date: 20081017
  Receipt Date: 20081007
  Transmission Date: 20090506
  Serious: Yes (Life-Threatening)
  Sender: FDA-Public Use
  Company Number: FR-AVENTIS-200813548FR

PATIENT
  Age: 70 Year
  Sex: Female

DRUGS (8)
  1. DOLIPRANE [Suspect]
     Indication: DRUG USE FOR UNKNOWN INDICATION
     Route: 048
     Dates: start: 20080918, end: 20080922
  2. LOVENOX [Suspect]
     Indication: DRUG USE FOR UNKNOWN INDICATION
     Route: 058
     Dates: start: 20080919, end: 20080922
  3. AXEPIM [Suspect]
     Indication: DRUG USE FOR UNKNOWN INDICATION
     Dates: start: 20080918, end: 20080922
  4. PROZAC [Suspect]
     Indication: DRUG USE FOR UNKNOWN INDICATION
     Route: 048
     Dates: start: 20080919, end: 20080922
  5. LEXOMIL [Suspect]
     Indication: DRUG USE FOR UNKNOWN INDICATION
     Route: 048
     Dates: start: 20080919, end: 20080922
  6. SKENAN [Suspect]
     Indication: DRUG USE FOR UNKNOWN INDICATION
     Route: 048
     Dates: start: 20080918, end: 20080922
  7. FORLAX [Suspect]
     Indication: DRUG USE FOR UNKNOWN INDICATION
     Route: 048
     Dates: start: 20080919, end: 20080922
  8. MOPRAL [Suspect]
     Indication: DRUG USE FOR UNKNOWN INDICATION
     Route: 048
     Dates: start: 20080918, end: 20080921

REACTIONS (8)
  - ALTERED STATE OF CONSCIOUSNESS [None]
  - BRONCHIAL OEDEMA [None]
  - CEREBRAL ATROPHY [None]
  - CONVULSION [None]
  - ENCEPHALOPATHY [None]
  - EPILEPSY [None]
  - HYPOTONIA [None]
  - OVERDOSE [None]
